FAERS Safety Report 8581611-9 (Version None)
Quarter: 2012Q2

REPORT INFORMATION
  Report Type: 
  Country: None (occurrence: None)
  Receive Date: 20120423
  Receipt Date: 20100712
  Transmission Date: 20120825
  Serious: Yes (Hospitalization)
  Sender: FDA-Public Use
  Company Number: PHHY2010US45836

PATIENT
  Age: 35 Year
  Sex: Female

DRUGS (5)
  1. EXJADE [Suspect]
     Indication: IRON OVERLOAD
     Dosage: 1500 MG, DAILY
  2. GABAPENTIN [Concomitant]
  3. OXYCONTIN [Concomitant]
  4. HYDROXYUREA [Concomitant]
  5. CELEXA [Concomitant]

REACTIONS (4)
  - SICKLE CELL ANAEMIA WITH CRISIS [None]
  - BACK PAIN [None]
  - ARTHRALGIA [None]
  - PAIN [None]
